FAERS Safety Report 20647326 (Version 1)
Quarter: 2022Q1

REPORT INFORMATION
  Report Type: Spontaneous
  Country: CN (occurrence: CN)
  Receive Date: 20220329
  Receipt Date: 20220329
  Transmission Date: 20220424
  Serious: Yes (Other)
  Sender: FDA-Public Use
  Company Number: CN-ABBVIE-22K-035-4335285-00

PATIENT
  Age: 33 Year
  Sex: Female
  Weight: 59 kg

DRUGS (5)
  1. VALPROATE SODIUM [Suspect]
     Active Substance: VALPROATE SODIUM
     Indication: Mental disorder
     Dosage: 0.5 G AT NOON, 1 G EVERY NIGHT
     Route: 048
     Dates: start: 20200921, end: 20201102
  2. SUO LE [Concomitant]
     Indication: Product used for unknown indication
     Dates: start: 20201016, end: 20201102
  3. OLANZAPINE [Concomitant]
     Active Substance: OLANZAPINE
     Indication: Product used for unknown indication
     Dates: start: 20201009, end: 20201020
  4. LITHIUM CARBONATE [Concomitant]
     Active Substance: LITHIUM CARBONATE
     Indication: Product used for unknown indication
     Dates: start: 20200921, end: 20201102
  5. ARIPIPRAZOLE [Concomitant]
     Active Substance: ARIPIPRAZOLE
     Indication: Product used for unknown indication
     Dates: start: 20200921, end: 20201009

REACTIONS (2)
  - Hepatic function abnormal [Unknown]
  - Platelet count decreased [Unknown]

NARRATIVE: CASE EVENT DATE: 20201023
